FAERS Safety Report 20507071 (Version 1)
Quarter: 2022Q1

REPORT INFORMATION
  Report Type: Report from Study
  Country: US (occurrence: US)
  Receive Date: 20220223
  Receipt Date: 20220223
  Transmission Date: 20220424
  Serious: Yes (Other)
  Sender: FDA-Public Use
  Company Number: US-JAZZ-2022-US-003362

PATIENT
  Sex: Male

DRUGS (1)
  1. SUNOSI [Suspect]
     Active Substance: SOLRIAMFETOL
     Indication: Hypersomnia
     Dosage: UNK
     Dates: start: 20211101

REACTIONS (7)
  - Nephrotic syndrome [Unknown]
  - Carotid artery disease [Unknown]
  - Spinal operation [Unknown]
  - Cholecystectomy [Unknown]
  - Retinal operation [Unknown]
  - Muscle spasms [Unknown]
  - Off label use [Unknown]
